FAERS Safety Report 9179900 (Version 1)
Quarter: 2013Q1

REPORT INFORMATION
  Report Type: Spontaneous
  Country: JP (occurrence: JP)
  Receive Date: 20130321
  Receipt Date: 20130321
  Transmission Date: 20140127
  Serious: Yes (Other)
  Sender: FDA-Public Use
  Company Number: JP-OTSUKA-JP-2013-10629

PATIENT
  Age: 90 Year
  Sex: 0

DRUGS (3)
  1. SAMSCA [Suspect]
     Dosage: 7.5 MG MILLIGRAM(S), DAILY DOSE
     Route: 048
     Dates: start: 20130302, end: 20130302
  2. SAMSCA [Suspect]
     Dosage: 22.5 MG MILLIGRAM(S), DAILY DOSE
     Route: 048
     Dates: start: 20130303, end: 20130304
  3. LASIX [Concomitant]
     Dosage: 10 MG MILLIGRAM(S), DAILY DOSE
     Route: 048
     Dates: start: 20130302

REACTIONS (3)
  - Hypernatraemia [Recovered/Resolved]
  - Overdose [Unknown]
  - Drug prescribing error [Unknown]
